FAERS Safety Report 8440273-1 (Version None)
Quarter: 2012Q2

REPORT INFORMATION
  Report Type: 
  Country: None (occurrence: None)
  Receive Date: 20120615
  Receipt Date: 20120607
  Transmission Date: 20120825
  Serious: Yes (Death)
  Sender: FDA-Public Use
  Company Number: CL-PFIZER INC-2011122407

PATIENT
  Age: 62 Year
  Sex: Male
  Weight: 48.6 kg

DRUGS (7)
  1. ENALTEN [Concomitant]
     Indication: HYPERTENSION
     Dosage: 10 MG, 1X/DAY
     Route: 048
     Dates: start: 20110321
  2. METOCLOPRAMIDE [Concomitant]
     Indication: NAUSEA
     Dosage: 20 MG, 3X/DAY
     Route: 048
     Dates: start: 20110530
  3. TRAMADOL [Concomitant]
     Indication: BACK PAIN
     Dosage: 100 MG, 4X/DAY
     Route: 048
     Dates: start: 20110121
  4. AXITINIB [Suspect]
     Indication: METASTATIC RENAL CELL CARCINOMA
     Dosage: 5 MG, 2X/DAY
     Route: 048
     Dates: start: 20101203, end: 20110530
  5. ACETAMINOPHEN [Concomitant]
     Indication: BACK PAIN
     Dosage: 1 G, 4X/DAY
     Route: 048
     Dates: start: 20110530
  6. FAMOTIDINE [Concomitant]
     Indication: PROPHYLAXIS AGAINST GASTROINTESTINAL ULCER
     Dosage: 40 MG, 1X/DAY
     Route: 048
     Dates: start: 20110321, end: 20110523
  7. FAMOTIDINE [Concomitant]
     Dosage: UNK
     Dates: start: 20110501

REACTIONS (1)
  - IMPAIRED GASTRIC EMPTYING [None]
